FAERS Safety Report 12455006 (Version 3)
Quarter: 2016Q3

REPORT INFORMATION
  Report Type: Spontaneous
  Country: US (occurrence: US)
  Receive Date: 20160610
  Receipt Date: 20160727
  Transmission Date: 20161109
  Serious: Yes (Other)
  Sender: FDA-Public Use
  Company Number: US-HOSPIRA-3123315

PATIENT
  Age: 55 Year
  Sex: Female
  Weight: 109 kg

DRUGS (7)
  1. CELEBREX [Suspect]
     Active Substance: CELECOXIB
     Indication: ARTHRITIS
     Dosage: 200 MG, FREQ: 2 DAY; INTERVAL: 1
     Route: 048
  2. CEFEPIME HCL [Suspect]
     Active Substance: CEFEPIME HYDROCHLORIDE
     Indication: URINARY TRACT INFECTION
     Dosage: UNK
     Route: 042
     Dates: start: 201512
  3. CELEBREX [Suspect]
     Active Substance: CELECOXIB
     Indication: SJOGREN^S SYNDROME
     Dosage: 200 MG, 2X/DAY
     Route: 048
  4. TESSALON [Suspect]
     Active Substance: BENZONATATE
     Indication: LUNG DISORDER
     Dosage: 200 MG, AS NEEDED, FREQ: 3 DAY; INTERVAL: 1
     Route: 048
  5. CEFEPIME HCL [Suspect]
     Active Substance: CEFEPIME HYDROCHLORIDE
     Indication: PNEUMONIA
  6. TESSALON [Suspect]
     Active Substance: BENZONATATE
     Dosage: 200 MG, 3X/DAY
     Route: 048
  7. CEFEPIME HCL [Suspect]
     Active Substance: CEFEPIME HYDROCHLORIDE
     Indication: SEPSIS
     Dosage: UNK, FREQUENCY OF ONE HOUR AND INTERVAL OF 12
     Route: 041
     Dates: start: 20151201, end: 20151201

REACTIONS (3)
  - Hypersensitivity [Recovered/Resolved]
  - Urticaria [Unknown]
  - Rash [Unknown]

NARRATIVE: CASE EVENT DATE: 20151201
